FAERS Safety Report 6422086-5 (Version None)
Quarter: 2009Q4

REPORT INFORMATION
  Report Type: 
  Country: None (occurrence: None)
  Receive Date: 20091030
  Receipt Date: 20091021
  Transmission Date: 20100525
  Serious: Yes (Other)
  Sender: FDA-Public Use
  Company Number: FR-JNJFOC-20091002922

PATIENT
  Sex: Male

DRUGS (2)
  1. DAKTARIN [Suspect]
     Route: 002
     Dates: start: 20091009, end: 20091010
  2. DAKTARIN [Suspect]
     Indication: ORAL CANDIDIASIS
     Dosage: HALF SPOON 4 TIMES DAILY
     Route: 002
     Dates: start: 20091009, end: 20091010

REACTIONS (2)
  - ASPHYXIA [None]
  - DRUG PRESCRIBING ERROR [None]
